FAERS Safety Report 8196606-7 (Version None)
Quarter: 2012Q1

REPORT INFORMATION
  Report Type: 
  Country: None (occurrence: None)
  Receive Date: 20120309
  Receipt Date: 20120229
  Transmission Date: 20120608
  Serious: Yes (Other)
  Sender: FDA-Public Use
  Company Number: US-BAYER-2011-012981

PATIENT
  Age: 21 Year
  Sex: Female
  Weight: 61.224 kg

DRUGS (14)
  1. DROSPIRENONE AND ETHINYL ESTRADIOL [Suspect]
     Indication: PREMENSTRUAL SYNDROME
  2. CALCIUM CARBONATE [Concomitant]
     Indication: BLOOD CALCIUM ABNORMAL
     Dosage: UNK
  3. MIRTAZAPINE [Concomitant]
     Dosage: UNK
     Dates: start: 20100305
  4. VITAMIN TAB [Concomitant]
     Dosage: UNK
  5. SERTRALINE HYDROCHLORIDE [Concomitant]
     Indication: DEPRESSION
     Dosage: UNK
     Dates: start: 20090410, end: 20110517
  6. PROMETHAZINE [Concomitant]
     Dosage: UNK
     Dates: start: 20100329
  7. YASMIN [Suspect]
     Indication: PREMENSTRUAL SYNDROME
  8. DROSPIRENONE AND ETHINYL ESTRADIOL [Suspect]
     Indication: CONTRACEPTION
     Dosage: UNK
     Dates: start: 20080923, end: 20091026
  9. AMOXICILLIN [Concomitant]
     Dosage: UNK
     Dates: start: 20100310, end: 20100329
  10. FEXOFENADINE [Concomitant]
     Dosage: UNK
     Dates: start: 20100302
  11. SERTRALINE HYDROCHLORIDE [Concomitant]
     Indication: OBSESSIVE-COMPULSIVE DISORDER
  12. YASMIN [Suspect]
     Indication: CONTRACEPTION
     Dosage: UNK
     Dates: start: 20060915, end: 20080619
  13. SERTRALINE HYDROCHLORIDE [Concomitant]
     Indication: ANXIETY
  14. BENZONATATE [Concomitant]
     Dosage: UNK
     Dates: start: 20100329

REACTIONS (12)
  - INJURY [None]
  - CHOLECYSTITIS CHRONIC [None]
  - GALLBLADDER CHOLESTEROLOSIS [None]
  - PAIN [None]
  - ABDOMINAL PAIN [None]
  - GASTROOESOPHAGEAL REFLUX DISEASE [None]
  - WEIGHT INCREASED [None]
  - GALLBLADDER DISORDER [None]
  - EOSINOPHILIC OESOPHAGITIS [None]
  - ABDOMINAL DISTENSION [None]
  - GENERAL PHYSICAL HEALTH DETERIORATION [None]
  - VOMITING [None]
